FAERS Safety Report 10098398 (Version 2)
Quarter: 2014Q2

REPORT INFORMATION
  Report Type: Report from Study
  Country: JP (occurrence: JP)
  Receive Date: 20140423
  Receipt Date: 20140423
  Transmission Date: 20141212
  Serious: Yes (Life-Threatening, Hospitalization, Other)
  Sender: FDA-Public Use
  Company Number: PHHY2012JP035228

PATIENT
  Age: 37 Year
  Sex: Male
  Weight: 57 kg

DRUGS (10)
  1. ICL670A [Suspect]
     Indication: APLASTIC ANAEMIA
     Dosage: 1000 MG, DAILY
     Route: 048
     Dates: start: 20090121, end: 20090317
  2. ICL670A [Suspect]
     Dosage: 1250 MG, DAILY
     Route: 048
     Dates: start: 20090318, end: 20090331
  3. ICL670A [Suspect]
     Dosage: 1500 MG, DAILY
     Route: 048
     Dates: start: 20090401, end: 20110927
  4. ICL670A [Suspect]
     Dosage: 500 MG, DAILY
     Route: 048
     Dates: start: 20110928, end: 20120424
  5. ICL670A [Suspect]
     Dosage: 500 MG, DAILY
     Route: 048
     Dates: start: 20120502, end: 20140128
  6. DESFERAL [Concomitant]
     Indication: IRON OVERLOAD
     Dosage: 1000 MG, UNK
     Route: 030
     Dates: start: 200506, end: 200811
  7. NEORAL [Concomitant]
     Indication: APLASTIC ANAEMIA
     Dosage: 100 MG, UNK
     Route: 048
     Dates: start: 20090121, end: 20140128
  8. PRIMOBOLAN [Concomitant]
     Indication: APLASTIC ANAEMIA
     Dosage: 20 MG, UNK
     Route: 048
     Dates: start: 20090121, end: 20140128
  9. BAKTAR [Concomitant]
     Indication: PROPHYLAXIS
     Dosage: 2 DF, UNK
     Route: 048
     Dates: start: 20110213, end: 20140120
  10. TAKEPRON [Concomitant]
     Indication: PROPHYLAXIS
     Dosage: 15 MG, UNK
     Route: 048
     Dates: start: 20110930, end: 20111003

REACTIONS (5)
  - Septic shock [Recovered/Resolved]
  - Cellulitis [Recovered/Resolved]
  - Acute hepatic failure [Recovering/Resolving]
  - Pneumonia [Recovering/Resolving]
  - Sepsis [Unknown]
